FAERS Safety Report 6227328-7 (Version None)
Quarter: 2009Q2

REPORT INFORMATION
  Report Type: 
  Country: None (occurrence: None)
  Receive Date: 20090610
  Receipt Date: 20090526
  Transmission Date: 20091009
  Serious: Yes (Life-Threatening)
  Sender: FDA-Public Use
  Company Number: PHO-2009-009

PATIENT

DRUGS (4)
  1. PHOTOFRIN [Suspect]
     Indication: METASTATIC MALIGNANT MELANOMA
     Dosage: 2MG/KG IV
     Route: 042
  2. 5-AMINOLEVUNOLIC ACID [Suspect]
     Indication: METASTATIC MALIGNANT MELANOMA
     Dosage: 20MG/KG PO
     Route: 048
  3. DEXAMTHAZONE [Concomitant]
  4. RANITIDINE [Concomitant]

REACTIONS (1)
  - DEEP VEIN THROMBOSIS [None]
